FAERS Safety Report 10572145 (Version 2)
Quarter: 2014Q4

REPORT INFORMATION
  Report Type: Spontaneous
  Country: CN (occurrence: CN)
  Receive Date: 20141107
  Receipt Date: 20141107
  Transmission Date: 20150529
  Serious: Yes (Hospitalization)
  Sender: FDA-Public Use
  Company Number: CN-ASTRAZENECA-2014SE46676

PATIENT
  Age: 65 Year
  Sex: Male

DRUGS (8)
  1. CRESTOR [Suspect]
     Active Substance: ROSUVASTATIN CALCIUM
     Indication: HYPERLIPIDAEMIA
     Route: 048
     Dates: start: 20140624, end: 201406
  2. BAYASPIRIN [Concomitant]
     Active Substance: ASPIRIN
     Dates: start: 2002
  3. BETALOC [Suspect]
     Active Substance: METOPROLOL TARTRATE
     Route: 048
     Dates: start: 2002
  4. CRESTOR [Suspect]
     Active Substance: ROSUVASTATIN CALCIUM
     Indication: HYPERLIPIDAEMIA
     Route: 048
     Dates: start: 201403, end: 201405
  5. ISOSORBIDE MONONITRATE (LUNAN) [Suspect]
     Active Substance: ISOSORBIDE MONONITRATE
     Route: 065
     Dates: start: 2002
  6. POTASSIUM MAGNESIUM ASPARTATE [Concomitant]
     Dates: start: 2002
  7. INSULIN [Concomitant]
     Active Substance: INSULIN NOS
     Dates: start: 20140610
  8. ACARBOSE. [Concomitant]
     Active Substance: ACARBOSE
     Dates: start: 20140305

REACTIONS (3)
  - Blood glucose increased [Not Recovered/Not Resolved]
  - Coronary artery disease [Unknown]
  - Hyperlipidaemia [Unknown]

NARRATIVE: CASE EVENT DATE: 201403
